FAERS Safety Report 5199079-1 (Version None)
Quarter: 2007Q1

REPORT INFORMATION
  Report Type: 
  Country: None (occurrence: None)
  Receive Date: 20070104
  Receipt Date: 20061221
  Transmission Date: 20070707
  Serious: Yes (Hospitalization)
  Sender: FDA-Public Use
  Company Number: US-SHR-US-2006-040090

PATIENT
  Age: 29 Year
  Sex: Male

DRUGS (1)
  1. BETASERON [Suspect]
     Dosage: 8 MIU, EVERY 2D
     Route: 058
     Dates: start: 20061202

REACTIONS (4)
  - BACK PAIN [None]
  - FATIGUE [None]
  - HYPOAESTHESIA [None]
  - SENSORY LOSS [None]
